FAERS Safety Report 14453243 (Version 1)
Quarter: 2018Q1

REPORT INFORMATION
  Report Type: Spontaneous
  Country: TH (occurrence: TH)
  Receive Date: 20180129
  Receipt Date: 20180129
  Transmission Date: 20180509
  Serious: Yes (Hospitalization, Other)
  Sender: FDA-Public Use
  Company Number: TH-PFIZER INC-2018035475

PATIENT
  Age: 47 Year
  Sex: Male

DRUGS (1)
  1. SUTENT [Suspect]
     Active Substance: SUNITINIB MALATE
     Indication: METASTATIC RENAL CELL CARCINOMA
     Dosage: 50 MG, (4 TABLETS) 1 TIME PER DAY
     Route: 048
     Dates: start: 20170309, end: 20170811

REACTIONS (6)
  - Pancreatic duct obstruction [Not Recovered/Not Resolved]
  - Abdominal pain [Not Recovered/Not Resolved]
  - Benign pancreatic neoplasm [Not Recovered/Not Resolved]
  - Jaundice [Recovered/Resolved]
  - Bile duct obstruction [Unknown]
  - Pancreatitis [Unknown]

NARRATIVE: CASE EVENT DATE: 201709
